FAERS Safety Report 7520844-7 (Version None)
Quarter: 2011Q2

REPORT INFORMATION
  Report Type: 
  Country: None (occurrence: None)
  Receive Date: 20110603
  Receipt Date: 20100914
  Transmission Date: 20111010
  Serious: Yes (Death, Hospitalization)
  Sender: FDA-Public Use
  Company Number: SE-BAYER-201022721GPV

PATIENT
  Age: 58 Year
  Sex: Female

DRUGS (12)
  1. NEXAVAR [Suspect]
     Indication: HEPATIC NEOPLASM MALIGNANT
     Dosage: 400 MG, QD
     Route: 048
     Dates: start: 20100311, end: 20100324
  2. FUROSEMIDE [Concomitant]
     Dosage: 120 MG (DAILY DOSE), QD, ORAL
     Route: 048
     Dates: start: 20100310, end: 20100414
  3. TIOTROPIUM BROMIDE [Concomitant]
     Route: 048
     Dates: start: 20090101, end: 20100414
  4. SPIRONOLACTONE [Concomitant]
     Dosage: 25 MG (DAILY DOSE), QD, ORAL
     Route: 048
     Dates: start: 20090101, end: 20100325
  5. NEXAVAR [Suspect]
     Dosage: 400 MG, QD
     Route: 048
     Dates: start: 20100330, end: 20100414
  6. TIOTROPIUM BROMIDE [Concomitant]
     Route: 048
     Dates: start: 20090101, end: 20100414
  7. MORFIN [Concomitant]
     Dosage: 20 MG (DAILY DOSE), QD, ORAL
     Route: 048
     Dates: start: 20090612, end: 20100414
  8. ANASTROZOLE [Concomitant]
     Dosage: 1 MG (DAILY DOSE), QD, ORAL
     Route: 048
     Dates: start: 20070828, end: 20100414
  9. ACETYLCYSTEINE [Concomitant]
     Dosage: 200 MG (DAILY DOSE), QD, ORAL
     Route: 048
     Dates: start: 20100311, end: 20100414
  10. SYMBICORT [Concomitant]
     Dosage: 160/4.5 (...)
     Route: 055
     Dates: start: 20090513, end: 20100414
  11. LOSARTAN POTASSIUM [Concomitant]
     Dosage: 12.5
     Route: 048
     Dates: start: 20090101, end: 20100325
  12. SPIRONOLACTONE [Concomitant]
     Dosage: 25 MG, UNK
     Route: 048
     Dates: start: 20090101, end: 20100414

REACTIONS (2)
  - INFECTION [None]
  - DEATH [None]
